FAERS Safety Report 9255817 (Version 1)
Quarter: 2013Q2

REPORT INFORMATION
  Report Type: Spontaneous
  Country: US (occurrence: US)
  Receive Date: 20130425
  Receipt Date: 20130425
  Transmission Date: 20140414
  Serious: Yes (Other)
  Sender: FDA-Public Use
  Company Number: PHHY2013US038672

PATIENT
  Age: 13 Year
  Sex: Male

DRUGS (3)
  1. CICLOSPORIN [Suspect]
     Indication: APLASTIC ANAEMIA
  2. METHYLPREDNISOLONE [Suspect]
     Indication: APLASTIC ANAEMIA
  3. ANTILYMPHOCYTE GLOBULIN [Suspect]
     Indication: APLASTIC ANAEMIA

REACTIONS (4)
  - Posterior reversible encephalopathy syndrome [Unknown]
  - Muscular weakness [Unknown]
  - Hypertension [Unknown]
  - Headache [Unknown]
